FAERS Safety Report 8511977 (Version 2)
Quarter: 2013Q2

REPORT INFORMATION
  Report Type: Spontaneous
  Country: US (occurrence: US)
  Receive Date: 20120413
  Receipt Date: 20130521
  Transmission Date: 20140414
  Serious: No
  Sender: FDA-Public Use
  Company Number: US-ASTRAZENECA-2011SE46815

PATIENT
  Age: 65 Year
  Sex: Female
  Weight: 73.9 kg

DRUGS (2)
  1. NEXIUM [Suspect]
     Indication: GASTROOESOPHAGEAL REFLUX DISEASE
     Route: 048
     Dates: start: 2006
  2. CALCIUM SUPPLEMENTS [Concomitant]

REACTIONS (4)
  - Osteopenia [Unknown]
  - Vitamin D decreased [Unknown]
  - Dyspepsia [Unknown]
  - Drug dose omission [Unknown]
